FAERS Safety Report 5657623-1 (Version None)
Quarter: 2008Q1

REPORT INFORMATION
  Report Type: 
  Country: None (occurrence: None)
  Receive Date: 20080310
  Receipt Date: 20080229
  Transmission Date: 20080703
  Serious: Yes (Hospitalization)
  Sender: FDA-Public Use
  Company Number: BE-ABBOTT-08P-013-0440606-00

PATIENT
  Sex: Male
  Weight: 89 kg

DRUGS (1)
  1. KALETRA [Suspect]
     Indication: HIV INFECTION
     Dates: start: 20071229

REACTIONS (3)
  - BACK PAIN [None]
  - PSOAS ABSCESS [None]
  - PYREXIA [None]
